FAERS Safety Report 6635766-3 (Version None)
Quarter: 2010Q1

REPORT INFORMATION
  Report Type: 
  Country: None (occurrence: None)
  Receive Date: 20100316
  Receipt Date: 20100312
  Transmission Date: 20100710
  Serious: Yes (Other)
  Sender: FDA-Public Use
  Company Number: US-ASTRAZENECA-2009SE25960

PATIENT
  Age: 16 Year
  Sex: Female
  Weight: 109.8 kg

DRUGS (11)
  1. SEROQUEL [Suspect]
     Indication: DEPRESSION
     Route: 048
     Dates: start: 19990101, end: 20090901
  2. SEROQUEL [Suspect]
     Indication: ANXIETY
     Route: 048
     Dates: start: 19990101, end: 20090901
  3. SEROQUEL [Suspect]
     Indication: BIPOLAR DISORDER
     Route: 048
     Dates: start: 19990101, end: 20090901
  4. ABILIFY [Concomitant]
     Dates: start: 19930101, end: 20090101
  5. CLOZARIL [Concomitant]
     Dates: start: 19930101, end: 20090101
  6. GEODON [Concomitant]
     Dates: start: 20090101
  7. RISPERDAL [Concomitant]
     Dates: start: 20020101
  8. ZYPREXA [Concomitant]
     Dates: start: 20010101
  9. ZOLOFT [Concomitant]
     Dates: start: 19930101, end: 20060101
  10. DEPAKOTE [Concomitant]
  11. PAXIL [Concomitant]
     Indication: DEPRESSION
     Dates: start: 20020101

REACTIONS (5)
  - HOMICIDAL IDEATION [None]
  - OBESITY [None]
  - SUICIDAL BEHAVIOUR [None]
  - SUICIDAL IDEATION [None]
  - TYPE 2 DIABETES MELLITUS [None]
